FAERS Safety Report 5523453-4 (Version None)
Quarter: 2007Q4

REPORT INFORMATION
  Report Type: 
  Country: None (occurrence: None)
  Receive Date: 20071121
  Receipt Date: 20071109
  Transmission Date: 20080405
  Serious: Yes (Other)
  Sender: FDA-Public Use
  Company Number: US-JNJFOC-20070503980

PATIENT
  Sex: Female
  Weight: 61.24 kg

DRUGS (23)
  1. DURAGESIC-100 [Suspect]
     Route: 062
  2. DURAGESIC-100 [Suspect]
     Indication: PAIN
     Route: 062
  3. ACIPHEX [Concomitant]
     Indication: GASTROOESOPHAGEAL REFLUX DISEASE
     Route: 048
  4. NEURONTIN [Concomitant]
     Route: 048
  5. NEURONTIN [Concomitant]
     Route: 048
  6. NEURONTIN [Concomitant]
     Indication: NEURALGIA
     Route: 048
  7. CARISOPRODOL [Concomitant]
     Indication: MUSCLE RELAXANT THERAPY
     Route: 048
  8. CHLORPHEN [Concomitant]
     Indication: NASAL DECONGESTION THERAPY
     Route: 048
  9. QVAR 40 [Concomitant]
     Route: 055
  10. VALIUM [Concomitant]
     Indication: ANXIETY
     Route: 048
  11. NORETHINDRONE ACETATE [Concomitant]
     Route: 048
  12. ZANTAC [Concomitant]
     Indication: GASTROOESOPHAGEAL REFLUX DISEASE
     Route: 048
  13. LEXAPRO [Concomitant]
     Indication: ANXIETY
     Route: 048
  14. LOPRESSOR [Concomitant]
     Indication: BLOOD PRESSURE
     Route: 048
  15. ZANAFLEX [Concomitant]
     Indication: MUSCLE RELAXANT THERAPY
     Route: 048
  16. LORTAB [Concomitant]
     Indication: SPINAL OSTEOARTHRITIS
     Dosage: 10/500, EVERY 4-6 HOURS
     Route: 048
  17. SOMA [Concomitant]
  18. ETODOLAC [Concomitant]
  19. METOPROLOL [Concomitant]
  20. CLARITIN [Concomitant]
  21. ROXICODONE [Concomitant]
     Route: 048
  22. ALLERX [Concomitant]
     Dosage: P.M.
     Route: 065
  23. ALLERX [Concomitant]
     Dosage: A.M.
     Route: 065

REACTIONS (3)
  - JOINT SWELLING [None]
  - LIGAMENT RUPTURE [None]
  - OEDEMA PERIPHERAL [None]
